FAERS Safety Report 24700840 (Version 1)
Quarter: 2024Q4

REPORT INFORMATION
  Report Type: Spontaneous
  Country: US (occurrence: None)
  Receive Date: 20241204
  Receipt Date: 20241204
  Transmission Date: 20250115
  Serious: Yes (Other)
  Sender: Public
  Company Number: None

PATIENT
  Age: 61 Year
  Sex: Female

DRUGS (1)
  1. TEZSPIRE [Suspect]
     Active Substance: TEZEPELUMAB-EKKO
     Dosage: OTHER QUANTITY : 210/1.91 MG/ML;?FREQUENCY : MONTHLY;?
     Route: 058
     Dates: start: 20240624

REACTIONS (2)
  - Dysarthria [None]
  - Dyspnoea [None]

NARRATIVE: CASE EVENT DATE: 20241204
